FAERS Safety Report 18145165 (Version 2)
Quarter: 2020Q4

REPORT INFORMATION
  Report Type: Spontaneous
  Country: US (occurrence: US)
  Receive Date: 20200813
  Receipt Date: 20201013
  Transmission Date: 20210113
  Serious: Yes (Life-Threatening, Hospitalization, Other)
  Sender: FDA-Public Use
  Company Number: US-DRREDDYS-USA/USA/20/0125945

PATIENT
  Age: 44 Year
  Sex: Female
  Weight: 79 kg

DRUGS (10)
  1. ROCURONIUM [Concomitant]
     Active Substance: ROCURONIUM BROMIDE
     Indication: ANAESTHESIA
     Route: 042
  2. ONDANSETRON [Suspect]
     Active Substance: ONDANSETRON
     Indication: NAUSEA
     Route: 065
  3. PROPOFOL INJECTABLE EMULSION [Suspect]
     Active Substance: PROPOFOL
     Route: 042
  4. REMIFENTANYL [Concomitant]
     Active Substance: REMIFENTANIL
     Indication: ANAESTHESIA
  5. PROPOFOL INJECTABLE EMULSION [Suspect]
     Active Substance: PROPOFOL
     Indication: ANAESTHESIA
     Dosage: INDUCTION
     Route: 042
  6. BUPROPION. [Suspect]
     Active Substance: BUPROPION
     Indication: DEPRESSION
     Route: 065
  7. GLYCOPYRROLATE. [Concomitant]
     Active Substance: GLYCOPYRROLATE
     Indication: PRODUCT USED FOR UNKNOWN INDICATION
  8. KETOROLAC [Concomitant]
     Active Substance: KETOROLAC TROMETHAMINE
     Indication: PAIN
  9. DECADRON [Concomitant]
     Active Substance: DEXAMETHASONE
     Indication: NAUSEA
  10. SUCCINYLCHOLINE CHLORIDE. [Concomitant]
     Active Substance: SUCCINYLCHOLINE CHLORIDE
     Indication: ANAESTHESIA
     Route: 042

REACTIONS (1)
  - Dystonia [Recovered/Resolved]
